FAERS Safety Report 6076697-X (Version None)
Quarter: 2009Q1

REPORT INFORMATION
  Report Type: 
  Country: None (occurrence: None)
  Receive Date: 20090213
  Receipt Date: 20090209
  Transmission Date: 20090719
  Serious: Yes (Other)
  Sender: FDA-Public Use
  Company Number: PHHY2009BR04539

PATIENT
  Age: 39 Year
  Sex: Male
  Weight: 89 kg

DRUGS (2)
  1. GALVUS MET COMBIPACK [Suspect]
     Indication: TYPE 2 DIABETES MELLITUS
     Dosage: 50/850 MG, TID, THREE TABLETS OF EACH ACTIVE COMPOUND IN THE MORNING, AFTERNOON AND AT NIGHT
     Route: 048
  2. CAPTOPRIL [Concomitant]
     Indication: HYPERTENSION
     Dosage: 25 MG, THREE TABLETS DAILY
     Route: 048

REACTIONS (1)
  - BLOOD GLUCOSE FLUCTUATION [None]
